FAERS Safety Report 21743046 (Version 1)
Quarter: 2022Q4

REPORT INFORMATION
  Report Type: Report from Study
  Country: US (occurrence: US)
  Receive Date: 20221217
  Receipt Date: 20221217
  Transmission Date: 20230112
  Serious: No
  Sender: FDA-Public Use
  Company Number: US-ABBVIE-4195822

PATIENT
  Sex: Female

DRUGS (9)
  1. SKYRIZI [Suspect]
     Active Substance: RISANKIZUMAB-RZAA
     Indication: Psoriasis
     Route: 058
     Dates: start: 202206
  2. CETIRIZINE [Concomitant]
     Active Substance: CETIRIZINE HYDROCHLORIDE
     Indication: Product used for unknown indication
  3. COVID-19 vaccine (COVID-19 vaccine) [Concomitant]
     Indication: COVID-19 immunisation
     Route: 030
  4. Influenza vaccine (Influenza vaccine) [Concomitant]
     Indication: Product used for unknown indication
  5. SIMVASTATIN [Concomitant]
     Active Substance: SIMVASTATIN
     Indication: Product used for unknown indication
  6. Betamethasone valerate (Betamethasone valerate [Concomitant]
     Indication: Product used for unknown indication
  7. Potassium sulfate (Potassium sulfate) [Concomitant]
     Indication: Product used for unknown indication
  8. Calcipotriene (Calcipotriol) [Concomitant]
     Indication: Product used for unknown indication
  9. Carbidopa/levodopa (Carbidopa;Levodopa) [Concomitant]
     Indication: Product used for unknown indication

REACTIONS (1)
  - Drug ineffective [Unknown]
